FAERS Safety Report 17662665 (Version 2)
Quarter: 2020Q2

REPORT INFORMATION
  Report Type: Spontaneous
  Country: DE (occurrence: DE)
  Receive Date: 20200413
  Receipt Date: 20200504
  Transmission Date: 20200713
  Serious: Yes (Life-Threatening, Hospitalization, Other)
  Sender: FDA-Public Use
  Company Number: NVSC2020DE050284

PATIENT
  Age: 61 Year
  Sex: Female
  Weight: 54 kg

DRUGS (4)
  1. KISQALI [Suspect]
     Active Substance: RIBOCICLIB
     Dosage: 400 MG, QD
     Route: 048
     Dates: start: 20200106, end: 20200213
  2. KISQALI [Suspect]
     Active Substance: RIBOCICLIB
     Dosage: 2000 UNK
     Route: 048
     Dates: start: 20191126, end: 20200213
  3. KISQALI [Suspect]
     Active Substance: RIBOCICLIB
     Indication: BREAST CANCER METASTATIC
     Dosage: 600 MG, QD
     Route: 048
     Dates: start: 20191126, end: 20191211
  4. LETROZOLE. [Suspect]
     Active Substance: LETROZOLE
     Indication: BREAST CANCER METASTATIC
     Dosage: 2 MG
     Route: 048
     Dates: start: 20191126, end: 20200213

REACTIONS (8)
  - Chromaturia [Unknown]
  - Hepatomegaly [Unknown]
  - Jaundice [Unknown]
  - Neutropenia [Recovered/Resolved]
  - Gallbladder oedema [Recovered/Resolved]
  - Hepatitis [Recovering/Resolving]
  - Pleural effusion [Recovered/Resolved]
  - Fatigue [Unknown]

NARRATIVE: CASE EVENT DATE: 20191211
